FAERS Safety Report 5659349-7 (Version None)
Quarter: 2008Q1

REPORT INFORMATION
  Report Type: 
  Country: None (occurrence: None)
  Receive Date: 20080311
  Receipt Date: 20080306
  Transmission Date: 20080703
  Serious: Yes (Death, Other)
  Sender: FDA-Public Use
  Company Number: NL-JNJFOC-20080301161

PATIENT
  Age: 68 Year
  Sex: Male

DRUGS (5)
  1. TAVANIC [Suspect]
     Indication: DRUG USE FOR UNKNOWN INDICATION
     Route: 048
  2. AMOXICILLIN + CLAVULANATE POTASSIUM [Suspect]
     Indication: DRUG USE FOR UNKNOWN INDICATION
     Route: 065
  3. NORFLOXACIN [Suspect]
     Indication: DRUG USE FOR UNKNOWN INDICATION
     Route: 065
  4. ACETAMINOPHEN [Concomitant]
     Route: 065
  5. MORPHINE SUL INJ [Concomitant]
     Route: 065

REACTIONS (6)
  - ABSCESS [None]
  - DEATH [None]
  - HAEMATEMESIS [None]
  - PRIAPISM [None]
  - SWELLING FACE [None]
  - UROGENITAL HAEMORRHAGE [None]
